FAERS Safety Report 13038813 (Version 1)
Quarter: 2016Q4

REPORT INFORMATION
  Report Type: Spontaneous
  Country: GB (occurrence: GB)
  Receive Date: 20161219
  Receipt Date: 20161219
  Transmission Date: 20170207
  Serious: Yes (Hospitalization)
  Sender: FDA-Public Use
  Company Number: GB-ACCORD-046519

PATIENT
  Age: 57 Year
  Sex: Female

DRUGS (3)
  1. SIMPONI [Suspect]
     Active Substance: GOLIMUMAB
     Indication: PRODUCT USED FOR UNKNOWN INDICATION
     Route: 065
  2. FERROUS AMINOPROPANE DICARBOXY/FERROUS ASCORBATE/FERROUS ASPARTATE/FERROUS CARBONATE/FERROUS CHLORID [Concomitant]
     Indication: ANAEMIA
  3. METHOTREXATE. [Suspect]
     Active Substance: METHOTREXATE
     Indication: PRODUCT USED FOR UNKNOWN INDICATION
     Route: 065

REACTIONS (2)
  - Pleurisy [Unknown]
  - Lower respiratory tract infection [Recovered/Resolved with Sequelae]
